FAERS Safety Report 7061325-7 (Version None)
Quarter: 2010Q4

REPORT INFORMATION
  Report Type: 
  Country: None (occurrence: None)
  Receive Date: 20101026
  Receipt Date: 20101017
  Transmission Date: 20110411
  Serious: No
  Sender: FDA-Public Use
  Company Number: US-JNJFOC-20100703331

PATIENT
  Sex: Female
  Weight: 58.06 kg

DRUGS (6)
  1. DURAGESIC-100 [Suspect]
     Indication: EPSTEIN-BARR VIRUS INFECTION
     Dosage: NDC# 50458-0092-05
     Route: 062
  2. DURAGESIC-100 [Suspect]
     Indication: FIBROMYALGIA
     Dosage: NDC# 50458-0092-05
     Route: 062
  3. DURAGESIC-100 [Suspect]
     Indication: HEPATITIS C
     Dosage: NDC# 50458-0092-05
     Route: 062
  4. DURAGESIC-100 [Suspect]
     Indication: SYSTEMIC LUPUS ERYTHEMATOSUS
     Dosage: NDC# 50458-0092-05
     Route: 062
  5. DURAGESIC-100 [Suspect]
     Indication: RHEUMATOID ARTHRITIS
     Dosage: NDC# 50458-0092-05
     Route: 062
  6. UNKNOWN MEDICATION [Concomitant]
     Indication: PRODUCT USED FOR UNKNOWN INDICATION
     Route: 065

REACTIONS (14)
  - DRUG EFFECT DECREASED [None]
  - DYSGEUSIA [None]
  - FEELING COLD [None]
  - FEELING HOT [None]
  - FORMICATION [None]
  - HOT FLUSH [None]
  - HYPERHIDROSIS [None]
  - INCORRECT DRUG ADMINISTRATION RATE [None]
  - INFLUENZA [None]
  - NAUSEA [None]
  - PRODUCT QUALITY ISSUE [None]
  - RHINORRHOEA [None]
  - THERAPEUTIC RESPONSE DECREASED [None]
  - WITHDRAWAL SYNDROME [None]
